FAERS Safety Report 7672517-8 (Version None)
Quarter: 2011Q3

REPORT INFORMATION
  Report Type: 
  Country: None (occurrence: None)
  Receive Date: 20110809
  Receipt Date: 20110725
  Transmission Date: 20111222
  Serious: Yes (Hospitalization)
  Sender: FDA-Public Use
  Company Number: US-WATSON-2011-12244

PATIENT
  Age: 46 Year
  Sex: Female

DRUGS (2)
  1. VANCOMYCIN HYCHLORIDE [Suspect]
     Indication: PRODUCT USED FOR UNKNOWN INDICATION
     Dosage: UNK
  2. LORAZEPAM [Suspect]
     Indication: CATATONIA
     Dosage: UNK
     Dates: start: 20091129

REACTIONS (3)
  - RESPIRATORY DISTRESS [None]
  - SEDATION [None]
  - ANAEMIA [None]
